FAERS Safety Report 8536273-3 (Version None)
Quarter: 2012Q3

REPORT INFORMATION
  Report Type: 
  Country: None (occurrence: None)
  Receive Date: 20120725
  Receipt Date: 20120716
  Transmission Date: 20120928
  Serious: Yes (Hospitalization)
  Sender: FDA-Public Use
  Company Number: US-JNJFOC-20120517596

PATIENT
  Sex: Female
  Weight: 75.75 kg

DRUGS (11)
  1. METHOTREXATE [Concomitant]
     Indication: RHEUMATOID ARTHRITIS
     Route: 048
     Dates: start: 20120412
  2. VITAMIN D [Concomitant]
     Route: 065
  3. METHOTREXATE [Concomitant]
     Route: 048
     Dates: start: 20080101, end: 20120201
  4. ZOLOFT [Concomitant]
     Route: 065
  5. REMICADE [Suspect]
     Route: 042
     Dates: start: 20111001, end: 20120201
  6. OTHER THERAPEUTIC PRODUCTS [Concomitant]
     Indication: NUTRITIONAL SUPPORT
     Route: 065
  7. REMICADE [Suspect]
     Indication: RHEUMATOID ARTHRITIS
     Route: 042
     Dates: start: 20110720
  8. PREDNISONE [Concomitant]
     Indication: RHEUMATOID ARTHRITIS
     Route: 048
  9. HYDROCODONE [Concomitant]
     Indication: RHEUMATOID ARTHRITIS
     Route: 065
  10. VITAMIN B COMPLEX CAP [Concomitant]
     Indication: NUTRITIONAL SUPPORT
     Route: 065
  11. FOLIC ACID [Concomitant]
     Route: 065

REACTIONS (4)
  - BACK DISORDER [None]
  - DYSPNOEA [None]
  - CARDIAC DISORDER [None]
  - PULMONARY OEDEMA [None]
